FAERS Safety Report 5044837-7 (Version None)
Quarter: 2006Q3

REPORT INFORMATION
  Report Type: 
  Country: None (occurrence: None)
  Receive Date: 20060707
  Receipt Date: 20060118
  Transmission Date: 20061208
  Serious: Yes (Other)
  Sender: FDA-Public Use
  Company Number: 2006UW13677

PATIENT
  Age: 45 Year
  Sex: Female
  Weight: 104.3 kg

DRUGS (6)
  1. TOPROL-XL [Suspect]
     Indication: HYPERTENSION
     Route: 048
     Dates: start: 20060101
  2. ATACAND [Suspect]
     Route: 048
  3. FOSAMAX [Concomitant]
  4. MULTI-VITAMIN [Concomitant]
  5. VITAMIN E [Concomitant]
  6. CALCIUM GLUCONATE [Concomitant]

REACTIONS (3)
  - COUGH [None]
  - HYPERTENSION [None]
  - MALAISE [None]
